FAERS Safety Report 16257258 (Version 3)
Quarter: 2019Q2

REPORT INFORMATION
  Report Type: Spontaneous
  Country: US (occurrence: US)
  Receive Date: 20190430
  Receipt Date: 20190604
  Transmission Date: 20190711
  Serious: No
  Sender: FDA-Public Use
  Company Number: US-GLAXOSMITHKLINE-US2019074130

PATIENT
  Age: 71 Year
  Sex: Female

DRUGS (1)
  1. NICORETTE [Suspect]
     Active Substance: NICOTINE
     Indication: SMOKING CESSATION THERAPY
     Dosage: 4 MG, QD
     Dates: start: 201806, end: 201904

REACTIONS (6)
  - Throat irritation [Unknown]
  - Oral discomfort [Unknown]
  - Dysphonia [Unknown]
  - Incorrect dose administered [Unknown]
  - Wrong technique in product usage process [Unknown]
  - Chapped lips [Unknown]

NARRATIVE: CASE EVENT DATE: 201902
